FAERS Safety Report 13384625 (Version 1)
Quarter: 2017Q1

REPORT INFORMATION
  Report Type: Spontaneous
  Country: US (occurrence: US)
  Receive Date: 20170329
  Receipt Date: 20170329
  Transmission Date: 20170429
  Serious: No
  Sender: FDA-Public Use
  Company Number: None

PATIENT
  Age: 72 Year
  Sex: Female

DRUGS (2)
  1. IMATINIB MES [Suspect]
     Active Substance: IMATINIB MESYLATE
     Indication: VOMITING
  2. IMATINIB MES [Suspect]
     Active Substance: IMATINIB MESYLATE
     Indication: COLON CANCER

REACTIONS (3)
  - Pain [None]
  - Vomiting [None]
  - Constipation [None]

NARRATIVE: CASE EVENT DATE: 20170320
